FAERS Safety Report 16781536 (Version 1)
Quarter: 2019Q3

REPORT INFORMATION
  Report Type: Spontaneous
  Country: US (occurrence: US)
  Receive Date: 20190906
  Receipt Date: 20190906
  Transmission Date: 20191005
  Serious: No
  Sender: FDA-Public Use
  Company Number: US-IGSA-SR10009024

PATIENT
  Age: 61 Year
  Sex: Female

DRUGS (13)
  1. PROBIOTIC                          /06395501/ [Concomitant]
     Active Substance: BIFIDOBACTERIUM ANIMALIS LACTIS
  2. ASPIRIN. [Concomitant]
     Active Substance: ASPIRIN
  3. CALCIUM D                          /00944201/ [Concomitant]
     Active Substance: CALCIUM CARBONATE\CHOLECALCIFEROL
     Dosage: 600 UNK, UNK
  4. GAMUNEX-C [Suspect]
     Active Substance: HUMAN IMMUNOGLOBULIN G
     Indication: MULTIFOCAL MOTOR NEUROPATHY
     Dosage: 60 G, UNK
     Dates: start: 20190805, end: 20190805
  5. OMEPRAZOLE. [Concomitant]
     Active Substance: OMEPRAZOLE
  6. HEPARIN LOCK FLUSH [Concomitant]
     Active Substance: HEPARIN SODIUM
     Indication: ADVERSE DRUG REACTION
     Dosage: UNK
     Dates: start: 20190805
  7. FISH OIL [Concomitant]
     Active Substance: FISH OIL
  8. EPINEPHRINE. [Concomitant]
     Active Substance: EPINEPHRINE
     Indication: ADVERSE DRUG REACTION
     Dosage: UNK
     Dates: start: 20190805
  9. ALLERGY RELIEF                     /00884302/ [Concomitant]
  10. DIGESTIVE ENZYMES                  /02161301/ [Concomitant]
     Active Substance: BETAINE\BROMELAINS\CELLULASE\PANCRELIPASE\PAPAIN
  11. NORMAL SALINE [Concomitant]
     Active Substance: SODIUM CHLORIDE
     Indication: ADVERSE DRUG REACTION
     Dosage: UNK
     Dates: start: 20190805
  12. ENALAPRIL MALEATE. [Concomitant]
     Active Substance: ENALAPRIL MALEATE
  13. MULTIVITAMIN                       /00097801/ [Concomitant]
     Active Substance: VITAMINS

REACTIONS (1)
  - Dyspepsia [Recovered/Resolved]

NARRATIVE: CASE EVENT DATE: 20190805
